FAERS Safety Report 7237121-4 (Version None)
Quarter: 2011Q1

REPORT INFORMATION
  Report Type: 
  Country: None (occurrence: None)
  Receive Date: 20110121
  Receipt Date: 20110116
  Transmission Date: 20110831
  Serious: Yes (Death, Other)
  Sender: FDA-Public Use
  Company Number: US-BAYER-200920840NA

PATIENT
  Sex: Female

DRUGS (4)
  1. BETASERON [Suspect]
     Route: 058
     Dates: start: 20080812, end: 20081026
  2. BETASERON [Suspect]
     Route: 058
     Dates: start: 20081105, end: 20090421
  3. BETASERON [Suspect]
     Route: 058
     Dates: start: 20090521
  4. BETASERON [Suspect]
     Indication: MULTIPLE SCLEROSIS
     Route: 058
     Dates: start: 20070906, end: 20070920

REACTIONS (3)
  - DEATH [None]
  - CONVULSION [None]
  - INCREASED TENDENCY TO BRUISE [None]
